FAERS Safety Report 26010052 (Version 1)
Quarter: 2025Q4

REPORT INFORMATION
  Report Type: Spontaneous
  Country: US (occurrence: US)
  Receive Date: 20251107
  Receipt Date: 20251107
  Transmission Date: 20260118
  Serious: Yes (Death)
  Sender: LABORATOIRES SERB
  Company Number: US-SERB S.A.S.-2188076

PATIENT

DRUGS (1)
  1. VISTOGARD [Suspect]
     Active Substance: URIDINE TRIACETATE
     Indication: Toxicity to various agents

REACTIONS (1)
  - Death [Fatal]
